FAERS Safety Report 19584428 (Version 1)
Quarter: 2021Q3

REPORT INFORMATION
  Report Type: Report from Study
  Country: None (occurrence: IT)
  Receive Date: 20210720
  Receipt Date: 20210720
  Transmission Date: 20211014
  Serious: Yes (Hospitalization, Disabling)
  Sender: FDA-Public Use
  Company Number: IT-ABBVIE-21K-083-3914235-00

PATIENT
  Age: 83 Year
  Sex: Female
  Weight: 95 kg

DRUGS (2)
  1. IMBRUVICA [Suspect]
     Active Substance: IBRUTINIB
     Indication: CHRONIC LYMPHOCYTIC LEUKAEMIA
     Route: 048
     Dates: start: 20190903, end: 20200708
  2. IMBRUVICA [Suspect]
     Active Substance: IBRUTINIB
     Route: 048
     Dates: start: 20200709, end: 20200719

REACTIONS (5)
  - Atrioventricular block second degree [Recovered/Resolved with Sequelae]
  - Chronic lymphocytic leukaemia [Not Recovered/Not Resolved]
  - Off label use [Unknown]
  - Acute kidney injury [Recovered/Resolved]
  - Product use issue [Unknown]

NARRATIVE: CASE EVENT DATE: 20190903
